FAERS Safety Report 12614176 (Version 2)
Quarter: 2016Q3

REPORT INFORMATION
  Report Type: Spontaneous
  Country: US (occurrence: US)
  Receive Date: 20160802
  Receipt Date: 20160811
  Transmission Date: 20161109
  Serious: Yes (Other)
  Sender: FDA-Public Use
  Company Number: US-SA-2016SA134853

PATIENT
  Age: 56 Year
  Sex: Female

DRUGS (10)
  1. VITAMIN D [Concomitant]
     Active Substance: CHOLECALCIFEROL
  2. AUBAGIO [Suspect]
     Active Substance: TERIFLUNOMIDE
     Indication: MULTIPLE SCLEROSIS
     Route: 048
     Dates: start: 20160429
  3. ADVAIR HFA [Concomitant]
     Active Substance: FLUTICASONE PROPIONATE\SALMETEROL XINAFOATE
  4. PREDNISONE. [Concomitant]
     Active Substance: PREDNISONE
  5. LASIX [Concomitant]
     Active Substance: FUROSEMIDE
  6. IBUPROFEN. [Concomitant]
     Active Substance: IBUPROFEN
  7. POTASSIUM [Concomitant]
     Active Substance: POTASSIUM
  8. MONTELUKAST [Concomitant]
     Active Substance: MONTELUKAST SODIUM
  9. CLONIDINE. [Concomitant]
     Active Substance: CLONIDINE
  10. DEBROX [Concomitant]
     Active Substance: CARBAMIDE PEROXIDE
     Dosage: EAR DROPS

REACTIONS (3)
  - Hot flush [Unknown]
  - Arthralgia [Unknown]
  - Insomnia [Unknown]

NARRATIVE: CASE EVENT DATE: 20160720
